FAERS Safety Report 11259649 (Version 1)
Quarter: 2015Q3

REPORT INFORMATION
  Report Type: Spontaneous
  Country: US (occurrence: US)
  Receive Date: 20150710
  Receipt Date: 20150710
  Transmission Date: 20151125
  Serious: No
  Sender: FDA-Public Use
  Company Number: US-MALLINCKRODT-T201403556

PATIENT
  Age: 61 Year
  Sex: Female
  Weight: 85.71 kg

DRUGS (4)
  1. AMBIEN [Concomitant]
     Active Substance: ZOLPIDEM TARTRATE
     Indication: INSOMNIA
     Dosage: UNK
  2. MORPHINE SULFATE. [Concomitant]
     Active Substance: MORPHINE SULFATE
     Dosage: UNK
     Dates: start: 20140908
  3. MORPHINE [Suspect]
     Active Substance: MORPHINE
     Indication: PAIN
     Dosage: 60 MG, Q 6 HRS
     Route: 048
     Dates: start: 20140919
  4. KLONOPIN [Concomitant]
     Active Substance: CLONAZEPAM
     Indication: TRIGEMINAL NEURALGIA
     Dosage: UNK

REACTIONS (4)
  - Cyanosis [Recovered/Resolved]
  - Peripheral coldness [Recovered/Resolved]
  - Urinary retention [Recovered/Resolved]
  - Oedema peripheral [Recovered/Resolved]

NARRATIVE: CASE EVENT DATE: 20140919
